FAERS Safety Report 6895595-2 (Version None)
Quarter: 2010Q3

REPORT INFORMATION
  Report Type: 
  Country: None (occurrence: None)
  Receive Date: 20100802
  Receipt Date: 20100728
  Transmission Date: 20110219
  Serious: Yes (Death)
  Sender: FDA-Public Use
  Company Number: PHHY2010CA46325

PATIENT
  Sex: Male

DRUGS (9)
  1. ALISKIREN ALI+ [Suspect]
     Indication: HYPERTENSION
     Dosage: 300 MG, QD
     Route: 048
     Dates: start: 20090622
  2. AVAPRO [Concomitant]
  3. COUMADIN [Concomitant]
  4. DILTIAZEM [Concomitant]
  5. VIAGRA [Concomitant]
  6. METOPROLOL [Concomitant]
  7. CRESTOR [Concomitant]
  8. NOVORAPID [Concomitant]
  9. VITAMIN B-12 [Concomitant]

REACTIONS (4)
  - CHEST PAIN [None]
  - DEATH [None]
  - PULSE ABSENT [None]
  - SYNCOPE [None]
